FAERS Safety Report 23339355 (Version 1)
Quarter: 2023Q4

REPORT INFORMATION
  Report Type: Spontaneous
  Country: FR (occurrence: FR)
  Receive Date: 20231226
  Receipt Date: 20231226
  Transmission Date: 20240110
  Serious: Yes (Other)
  Sender: FDA-Public Use
  Company Number: FR-ROCHE-3434940

PATIENT
  Age: 7 Year
  Sex: Female
  Weight: 24.1 kg

DRUGS (28)
  1. CARBOPLATIN [Suspect]
     Active Substance: CARBOPLATIN
     Indication: B-cell lymphoma
     Dosage: 565 MG
     Route: 042
     Dates: start: 20230811
  2. CYTARABINE [Suspect]
     Active Substance: CYTARABINE
     Indication: B-cell lymphoma
     Dosage: 25 MG
     Route: 037
     Dates: start: 20230811
  3. HYDROCORTISONE [Suspect]
     Active Substance: HYDROCORTISONE
     Indication: B-cell lymphoma
     Dosage: 12 MG (START DATE OF MOST RECENT DOSE PRIOR TO SAE ONSET: 11/AUG/2023)
     Route: 037
     Dates: start: 20230811
  4. GLOFITAMAB [Suspect]
     Active Substance: GLOFITAMAB
     Indication: B-cell lymphoma
     Dosage: 3.5 MG (ON 28/AUG/2023 RECEIVED MOST RECENT DOSE OF STUDY DRUG PRIOR TO EVENT)
     Route: 042
  5. GLOFITAMAB [Suspect]
     Active Substance: GLOFITAMAB
     Dosage: 0.7 MG
     Route: 042
     Dates: start: 20230818
  6. OBINUTUZUMAB [Suspect]
     Active Substance: OBINUTUZUMAB
     Indication: B-cell lymphoma
     Dosage: ON 10/AUG/2023 RECEIVED RECENT DOSE OF STUDY DRUG PRIOR TO EVENT.
     Route: 042
  7. OBINUTUZUMAB [Suspect]
     Active Substance: OBINUTUZUMAB
     Dosage: 54 MG
     Route: 042
     Dates: start: 20230809
  8. ETOPOSIDE [Suspect]
     Active Substance: ETOPOSIDE
     Indication: B-cell lymphoma
     Dosage: 90 MG
     Route: 042
     Dates: start: 20230811
  9. MESNA [Suspect]
     Active Substance: MESNA
     Indication: B-cell lymphoma
     Dosage: 530 MG (ON 14/AUG/2023 RECEIVED MOST RECENT DOSE OF STUDY DRUG PRIOR TO EVENT)
     Route: 042
     Dates: start: 20230811
  10. METHOTREXATE [Suspect]
     Active Substance: METHOTREXATE
     Indication: B-cell lymphoma
     Dosage: 12 MG
     Route: 037
     Dates: start: 20230811
  11. LENOGRASTIM [Suspect]
     Active Substance: LENOGRASTIM
     Indication: B-cell lymphoma
     Dosage: 5 UG
     Route: 042
     Dates: start: 20230814
  12. IFOSFAMIDE [Suspect]
     Active Substance: IFOSFAMIDE
     Indication: B-cell lymphoma
     Dosage: 2.67 G (ON 13/AUG/2023, RECEIVED MOST RECENT DOSE OF IFOSFAMIDE PRIOR TO EVENT)
     Route: 042
     Dates: start: 20230811
  13. OXYGEN [Concomitant]
     Active Substance: OXYGEN
     Dosage: UNK
  14. BACTRIM [Concomitant]
     Active Substance: SULFAMETHOXAZOLE\TRIMETHOPRIM
     Dosage: 600 MG, 1X/DAY
     Route: 048
     Dates: start: 202302, end: 20230907
  15. HYDROCORTISONE [Concomitant]
     Active Substance: HYDROCORTISONE
     Dosage: 5 MG, 1X/DAY
     Route: 048
  16. ACETAMINOPHEN [Concomitant]
     Active Substance: ACETAMINOPHEN
     Dosage: 350 MG, DAILY
     Dates: start: 20230828, end: 20230828
  17. ACETAMINOPHEN [Concomitant]
     Active Substance: ACETAMINOPHEN
     Dosage: 350 MG, DAILY
     Dates: start: 20230818, end: 20230818
  18. ACETAMINOPHEN [Concomitant]
     Active Substance: ACETAMINOPHEN
     Dosage: 350 MG, DAILY
     Dates: start: 20230809, end: 20230810
  19. ATARAX [Concomitant]
     Active Substance: HYDROXYZINE HYDROCHLORIDE
     Indication: Anxiety
     Dosage: 20 MG, DAILY
     Dates: start: 20230812, end: 202308
  20. INTRATECT [Concomitant]
     Active Substance: HUMAN IMMUNOGLOBULIN G
     Dosage: 10 G, DAILY
     Dates: start: 20230822, end: 20230822
  21. DEXAMETHASONE [Concomitant]
     Active Substance: DEXAMETHASONE
     Dosage: 10 MG, DAILY
     Dates: start: 20230828, end: 20230828
  22. DEXAMETHASONE [Concomitant]
     Active Substance: DEXAMETHASONE
     Dosage: 12 MG, DAILY
     Dates: start: 20230818, end: 20230818
  23. DEXAMETHASONE [Concomitant]
     Active Substance: DEXAMETHASONE
     Dosage: 12 MG, DAILY
     Dates: start: 20230809, end: 20230820
  24. POLARAMINE [Concomitant]
     Active Substance: DEXCHLORPHENIRAMINE MALEATE
     Dosage: 5 MG, DAILY
     Dates: start: 20230818, end: 20230818
  25. POLARAMINE [Concomitant]
     Active Substance: DEXCHLORPHENIRAMINE MALEATE
     Dosage: 5 MG, DAILY
     Dates: start: 20230828, end: 20230828
  26. POLARAMINE [Concomitant]
     Active Substance: DEXCHLORPHENIRAMINE MALEATE
     Dosage: 5 MG, DAILY
     Dates: start: 20230809, end: 20230810
  27. RASBURICASE [Concomitant]
     Active Substance: RASBURICASE
     Dosage: 4.7 MG, DAILY
     Dates: start: 20230809, end: 20230810
  28. AMOXICILLIN [Concomitant]
     Active Substance: AMOXICILLIN
     Dosage: 2.25 G, DAILY
     Dates: start: 20230822, end: 20230828

REACTIONS (1)
  - Cytokine release syndrome [Recovered/Resolved]

NARRATIVE: CASE EVENT DATE: 20230829
